FAERS Safety Report 8893968 (Version 1)
Quarter: 2012Q4

REPORT INFORMATION
  Report Type: 
  Country: CA (occurrence: CA)
  Receive Date: 20121107
  Receipt Date: 20121107
  Transmission Date: 20130627
  Serious: Yes (Other)
  Sender: FDA-Public Use
  Company Number: PHHO2005CA04027

PATIENT
  Sex: Male

DRUGS (1)
  1. SANDOSTATIN LAR (PATIENT BASIS) [Suspect]
     Dosage: 20 mg, UNK
     Dates: start: 20040909

REACTIONS (7)
  - General physical health deterioration [Unknown]
  - Hyperglycaemia [Not Recovered/Not Resolved]
  - Confusional state [Unknown]
  - Musculoskeletal stiffness [Unknown]
  - Injection site reaction [Unknown]
  - Dyspnoea [Unknown]
  - Hypoglycaemia [Unknown]
